FAERS Safety Report 4562564-7 (Version None)
Quarter: 2005Q1

REPORT INFORMATION
  Report Type: 
  Country: None (occurrence: None)
  Receive Date: 20050127
  Receipt Date: 20030407
  Transmission Date: 20050727
  Serious: Yes (Hospitalization, Disabling, Other)
  Sender: FDA-Public Use
  Company Number: US-MERCK-0304USA00739

PATIENT
  Age: 62 Year
  Sex: Female
  Weight: 62 kg

DRUGS (23)
  1. VIOXX [Suspect]
     Indication: PAIN
     Route: 048
     Dates: start: 20000918, end: 20010501
  2. VIOXX [Suspect]
     Indication: OSTEOARTHRITIS
     Route: 048
     Dates: start: 20000918, end: 20010501
  3. OS-CAL + D [Concomitant]
     Route: 065
  4. MAGNESIUM SULFATE [Concomitant]
     Route: 065
  5. POTASSIUM CHLORIDE [Concomitant]
     Route: 065
  6. ROCALTROL [Concomitant]
     Route: 048
  7. SYNTHROID [Concomitant]
     Route: 065
  8. SYNTHROID [Concomitant]
     Route: 048
     Dates: start: 20010401
  9. PRILOSEC [Concomitant]
     Route: 065
  10. REGLAN [Concomitant]
     Route: 065
  11. REGLAN [Concomitant]
     Route: 065
  12. AMBIEN [Concomitant]
     Route: 065
     Dates: start: 20000101
  13. DITROPAN XL [Concomitant]
     Route: 065
  14. AMITRIPTYLINE HYDROCHLORIDE [Concomitant]
     Indication: GENERALISED ANXIETY DISORDER
     Route: 065
     Dates: start: 19990101, end: 20010101
  15. CLARITIN [Concomitant]
     Route: 065
  16. CLARITIN-D [Concomitant]
     Route: 065
  17. LASIX [Concomitant]
     Indication: SWELLING
     Route: 065
  18. SLOW-K [Concomitant]
     Indication: SWELLING
     Route: 065
  19. PREMARIN [Concomitant]
     Route: 065
  20. QUININE [Concomitant]
     Route: 065
  21. FLONASE [Concomitant]
     Route: 065
  22. TESSALON [Concomitant]
     Route: 065
  23. PERCOCET [Concomitant]
     Route: 065

REACTIONS (86)
  - ACTIVATED PARTIAL THROMBOPLASTIN TIME PROLONGED [None]
  - AMAUROSIS FUGAX [None]
  - AMNESIA [None]
  - ANAEMIA HAEMOLYTIC AUTOIMMUNE [None]
  - ANXIETY [None]
  - ARTHRALGIA [None]
  - ARTHRITIS BACTERIAL [None]
  - ASTHENIA [None]
  - ATELECTASIS [None]
  - AZOTAEMIA [None]
  - BLINDNESS TRANSIENT [None]
  - BLOOD CHOLESTEROL INCREASED [None]
  - BLOOD CREATINE PHOSPHOKINASE INCREASED [None]
  - BLOOD PRESSURE INCREASED [None]
  - CARDIAC FLUTTER [None]
  - CELLULITIS [None]
  - CEREBRAL VENTRICLE DILATATION [None]
  - CEREBROVASCULAR ACCIDENT [None]
  - CHEST PAIN [None]
  - CHOLECYSTITIS [None]
  - CHOLELITHIASIS [None]
  - COAGULATION FACTOR VIII LEVEL INCREASED [None]
  - COAGULOPATHY [None]
  - CONDITION AGGRAVATED [None]
  - DECREASED APPETITE [None]
  - DISTURBANCE IN ATTENTION [None]
  - DRUG HYPERSENSITIVITY [None]
  - DRUG INEFFECTIVE [None]
  - DYSPHAGIA [None]
  - DYSPNOEA [None]
  - EMOTIONAL DISTRESS [None]
  - ENDOCRINE DISORDER [None]
  - EYE PAIN [None]
  - FACE OEDEMA [None]
  - FALL [None]
  - GASTRIC POLYPS [None]
  - GASTRITIS EROSIVE [None]
  - GASTROOESOPHAGEAL REFLUX DISEASE [None]
  - HAEMATOCHEZIA [None]
  - HAEMOPHILUS INFECTION [None]
  - HAEMORRHAGE [None]
  - HIATUS HERNIA [None]
  - HIGH DENSITY LIPOPROTEIN DECREASED [None]
  - HYPERCALCAEMIA [None]
  - HYPERGLYCAEMIA [None]
  - HYPOCALCAEMIA [None]
  - HYPOMAGNESAEMIA [None]
  - INCREASED APPETITE [None]
  - INJURY [None]
  - INSOMNIA [None]
  - IRON DEFICIENCY [None]
  - IRRITABLE BOWEL SYNDROME [None]
  - LEUKOCYTOSIS [None]
  - LOSS OF CONSCIOUSNESS [None]
  - LOW DENSITY LIPOPROTEIN INCREASED [None]
  - LUNG NEOPLASM [None]
  - MENTAL STATUS CHANGES [None]
  - MIGRAINE [None]
  - MUSCLE SPASMS [None]
  - MUSCLE TWITCHING [None]
  - MUSCULOSKELETAL STIFFNESS [None]
  - NEUROGENIC BLADDER [None]
  - OESOPHAGEAL DISORDER [None]
  - OPERATIVE HAEMORRHAGE [None]
  - PHARYNGITIS STREPTOCOCCAL [None]
  - PRESBYOESOPHAGUS [None]
  - PRURITUS [None]
  - PULMONARY GRANULOMA [None]
  - PYREXIA [None]
  - RED BLOOD CELL SPHEROCYTES PRESENT [None]
  - RENAL FAILURE [None]
  - RENAL FAILURE ACUTE [None]
  - SINUS DISORDER [None]
  - SINUSITIS [None]
  - SPUTUM DISCOLOURED [None]
  - TACHYCARDIA [None]
  - TINNITUS [None]
  - TOOTH DISORDER [None]
  - TOOTHACHE [None]
  - TRACHEOBRONCHITIS [None]
  - TRANSIENT ISCHAEMIC ATTACK [None]
  - UPPER RESPIRATORY TRACT INFECTION [None]
  - VIRAL INFECTION [None]
  - VISUAL DISTURBANCE [None]
  - WEIGHT DECREASED [None]
  - WEIGHT INCREASED [None]
